FAERS Safety Report 4646165-8 (Version None)
Quarter: 2005Q2

REPORT INFORMATION
  Report Type: 
  Country: None (occurrence: None)
  Receive Date: 20050422
  Receipt Date: 20050422
  Transmission Date: 20051028
  Serious: Yes (Other)
  Sender: FDA-Public Use
  Company Number: None

PATIENT
  Age: 69 Year
  Sex: Male
  Weight: 97.5 kg

DRUGS (2)
  1. SIMVASTATIN [Suspect]
  2. ALBUTEROL [Concomitant]

REACTIONS (1)
  - MYALGIA [None]
